FAERS Safety Report 13831134 (Version 3)
Quarter: 2017Q3

REPORT INFORMATION
  Report Type: Report from Study
  Country: US (occurrence: US)
  Receive Date: 20170803
  Receipt Date: 20170904
  Transmission Date: 20171127
  Serious: Yes (Hospitalization)
  Sender: FDA-Public Use
  Company Number: US-BIOGEN-2017BI00439119

PATIENT
  Age: 41 Year
  Sex: Male
  Weight: 60.3 kg

DRUGS (1)
  1. TECFIDERA [Suspect]
     Active Substance: DIMETHYL FUMARATE
     Indication: MULTIPLE SCLEROSIS
     Dosage: MAINTENANCE DOSE
     Route: 048
     Dates: start: 201705

REACTIONS (5)
  - Vascular pseudoaneurysm [Recovered/Resolved]
  - Flushing [Unknown]
  - Rash pruritic [Unknown]
  - Perirenal haematoma [Unknown]
  - Clear cell renal cell carcinoma [Recovered/Resolved]

NARRATIVE: CASE EVENT DATE: 20170701
